FAERS Safety Report 25609195 (Version 1)
Quarter: 2025Q3

REPORT INFORMATION
  Report Type: Spontaneous
  Country: VN (occurrence: VN)
  Receive Date: 20250727
  Receipt Date: 20250727
  Transmission Date: 20251021
  Serious: Yes (Hospitalization)
  Sender: JOHNSON AND JOHNSON
  Company Number: VN-JNJFOC-20250725435

PATIENT
  Age: 53 Year
  Sex: Male

DRUGS (1)
  1. DARZALEX [Suspect]
     Active Substance: DARATUMUMAB
     Indication: Product used for unknown indication
     Route: 065

REACTIONS (12)
  - Respiratory failure [Unknown]
  - Gastrointestinal haemorrhage [Unknown]
  - Parasitic gastroenteritis [Unknown]
  - C-reactive protein increased [Unknown]
  - Bone pain [Unknown]
  - Thrombocytopenia [Unknown]
  - Pneumonia [Unknown]
  - Infection [Unknown]
  - Pyrexia [Unknown]
  - Diarrhoea [Unknown]
  - Nausea [Unknown]
  - Vomiting [Unknown]
